FAERS Safety Report 5523067-6 (Version None)
Quarter: 2007Q4

REPORT INFORMATION
  Report Type: 
  Country: None (occurrence: None)
  Receive Date: 20071121
  Receipt Date: 20071114
  Transmission Date: 20080405
  Serious: Yes (Hospitalization, Other)
  Sender: FDA-Public Use
  Company Number: PHBS2007TR19165

PATIENT
  Age: 10 Year
  Sex: Male

DRUGS (1)
  1. DICLOFENAC SODIUM [Suspect]
     Indication: RENAL COLIC

REACTIONS (6)
  - BURNING SENSATION [None]
  - HYPOAESTHESIA [None]
  - MOBILITY DECREASED [None]
  - NEUROTOXICITY [None]
  - PAIN IN EXTREMITY [None]
  - PERONEAL NERVE PALSY [None]
